FAERS Safety Report 7337589-9 (Version None)
Quarter: 2011Q1

REPORT INFORMATION
  Report Type: 
  Country: None (occurrence: None)
  Receive Date: 20110303
  Receipt Date: 20110303
  Transmission Date: 20110831
  Serious: Yes (Life-Threatening)
  Sender: FDA-Public Use
  Company Number: None

PATIENT
  Age: 87 Year
  Sex: Female
  Weight: 49.8957 kg

DRUGS (4)
  1. OMEPRAZOLE [Suspect]
     Indication: ULCER
     Dosage: 20 MG 1-2 TIMES/DAY PO
     Route: 048
  2. OMEPRAZOLE [Suspect]
     Indication: ABDOMINAL PAIN UPPER
     Dosage: 20 MG 1-2 TIMES/DAY PO
     Route: 048
  3. NAMENDA [Concomitant]
  4. ARICEPT [Concomitant]

REACTIONS (1)
  - ARRHYTHMIA [None]
